FAERS Safety Report 9456907 (Version 3)
Quarter: 2013Q3

REPORT INFORMATION
  Report Type: Spontaneous
  Country: US (occurrence: US)
  Receive Date: 20130813
  Receipt Date: 20130913
  Transmission Date: 20140515
  Serious: No
  Sender: FDA-Public Use
  Company Number: US-009507513-1308USA000631

PATIENT
  Age: 58 Year
  Sex: Female

DRUGS (1)
  1. AZASITE [Suspect]
     Indication: OCULAR ROSACEA
     Dosage: 2 GTT, QD
     Route: 031
     Dates: start: 20130720

REACTIONS (5)
  - Drug ineffective [Unknown]
  - Product packaging issue [Unknown]
  - Drug prescribing error [Unknown]
  - Off label use [Unknown]
  - No adverse event [Unknown]
